FAERS Safety Report 5473583-0 (Version None)
Quarter: 2007Q4

REPORT INFORMATION
  Report Type: 
  Country: None (occurrence: None)
  Receive Date: 20071001
  Receipt Date: 20070508
  Transmission Date: 20080405
  Serious: No
  Sender: FDA-Public Use
  Company Number: US-ASTRAZENECA-2007UW11024

PATIENT
  Sex: Female

DRUGS (2)
  1. ARIMIDEX [Suspect]
     Indication: BREAST CANCER
     Route: 048
     Dates: start: 20070401
  2. AMBIEN [Concomitant]

REACTIONS (4)
  - ABDOMINAL PAIN UPPER [None]
  - ALOPECIA [None]
  - HEPATIC ENZYME INCREASED [None]
  - NAUSEA [None]
